FAERS Safety Report 5891952-1 (Version None)
Quarter: 2008Q3

REPORT INFORMATION
  Report Type: 
  Country: None (occurrence: None)
  Receive Date: 20080922
  Receipt Date: 20080916
  Transmission Date: 20090109
  Serious: Yes (Hospitalization)
  Sender: FDA-Public Use
  Company Number: JP-SANOFI-SYNTHELABO-F01200801460

PATIENT
  Sex: Male

DRUGS (5)
  1. MAGNESIUM OXIDE [Suspect]
     Dosage: 1 G
     Route: 048
     Dates: start: 20070801
  2. LEUCOVORIN CALCIUM [Suspect]
     Dosage: UNK
     Route: 041
     Dates: start: 20080227, end: 20080227
  3. FLUOROURACIL [Suspect]
     Dosage: UNK
     Route: 042
     Dates: start: 20080226, end: 20080227
  4. ELPLAT [Suspect]
     Indication: DRUG USE FOR UNKNOWN INDICATION
     Dosage: UNK
     Route: 041
     Dates: start: 20080226, end: 20080226
  5. AVASTIN [Suspect]
     Indication: RECTAL CANCER RECURRENT
     Dosage: UNK
     Route: 041
     Dates: start: 20080226, end: 20080226

REACTIONS (1)
  - INTERSTITIAL LUNG DISEASE [None]
